FAERS Safety Report 5939044-7 (Version None)
Quarter: 2008Q4

REPORT INFORMATION
  Report Type: 
  Country: None (occurrence: None)
  Receive Date: 20081103
  Receipt Date: 20081030
  Transmission Date: 20090506
  Serious: Yes (Hospitalization)
  Sender: FDA-Public Use
  Company Number: AU-SANOFI-SYNTHELABO-F01200601755

PATIENT
  Sex: Female
  Weight: 75 kg

DRUGS (15)
  1. DEXAMETHASONE [Concomitant]
     Route: 042
     Dates: start: 20060627, end: 20060627
  2. TROPISETRON [Concomitant]
     Route: 048
     Dates: start: 20060711, end: 20060711
  3. TROPISETRON [Concomitant]
     Route: 048
     Dates: start: 20060628, end: 20060628
  4. TROPISETRON [Concomitant]
     Route: 048
     Dates: start: 20060627, end: 20060627
  5. LORAZEPAM [Concomitant]
     Dosage: 1 MG
     Route: 030
     Dates: start: 20060628, end: 20060628
  6. ATORVASTATIN [Concomitant]
     Dosage: 20 MG
     Route: 048
     Dates: start: 20020812
  7. PROCHLORPERAZINE [Concomitant]
     Dosage: 5 MG
     Route: 048
     Dates: start: 20060627, end: 20060627
  8. PROCHLORPERAZINE [Concomitant]
     Route: 048
     Dates: start: 20060712, end: 20060715
  9. ASPIRIN [Concomitant]
     Dosage: 100 MG
     Route: 048
     Dates: start: 20041202
  10. OXYCONTIN [Concomitant]
     Route: 048
     Dates: start: 20060528, end: 20060801
  11. AMITRIPTYLINE HCL [Concomitant]
     Dosage: 10-25 MG
     Route: 048
     Dates: start: 20050131
  12. SOMAC [Concomitant]
     Dates: start: 20021128
  13. COLOXYL + SENNA [Concomitant]
     Dates: start: 20050701
  14. GEMCITABINE [Suspect]
     Route: 065
     Dates: start: 20060711, end: 20060711
  15. OXALIPLATIN [Suspect]
     Indication: PANCREATIC CARCINOMA
     Route: 065
     Dates: start: 20060712, end: 20060712

REACTIONS (3)
  - ABDOMINAL PAIN [None]
  - BACILLUS INFECTION [None]
  - BLOOD CULTURE POSITIVE [None]
